FAERS Safety Report 24752338 (Version 1)
Quarter: 2024Q4

REPORT INFORMATION
  Report Type: Spontaneous
  Country: JP (occurrence: JP)
  Receive Date: 20241219
  Receipt Date: 20241219
  Transmission Date: 20250114
  Serious: Yes (Hospitalization, Other)
  Sender: MERCK
  Company Number: JP-BAYER-2023A179336

PATIENT
  Age: 82 Year
  Sex: Male
  Weight: 61.6 kg

DRUGS (9)
  1. VERICIGUAT [Suspect]
     Active Substance: VERICIGUAT
     Dosage: DAILY DOSE 5 MG
     Route: 048
     Dates: start: 20231104
  2. EDOXABAN TOSYLATE [Concomitant]
     Active Substance: EDOXABAN TOSYLATE
     Dosage: DAILY DOSE 30 MG
     Route: 048
     Dates: start: 20221202
  3. BISOPROLOL FUMARATE [Concomitant]
     Active Substance: BISOPROLOL FUMARATE
     Dosage: DAILY DOSE 0.13 MG
     Route: 048
     Dates: start: 20221202, end: 20221202
  4. BISOPROLOL FUMARATE [Concomitant]
     Active Substance: BISOPROLOL FUMARATE
     Dosage: DAILY DOSE 2.5 MG
     Route: 048
     Dates: start: 20221203
  5. ENALAPRIL [Concomitant]
     Active Substance: ENALAPRIL
     Dosage: DAILY DOSE 2.5 MG
     Route: 048
     Dates: start: 20221202, end: 20240315
  6. FEBUXOSTAT [Concomitant]
     Active Substance: FEBUXOSTAT
     Dosage: DAILY DOSE 20 MG
     Route: 048
     Dates: start: 20240124
  7. AZOSEMIDE [Concomitant]
     Active Substance: AZOSEMIDE
     Dosage: DAILY DOSE 15 MG
     Route: 048
     Dates: start: 20240107, end: 20240114
  8. AZOSEMIDE [Concomitant]
     Active Substance: AZOSEMIDE
     Dosage: DAILY DOSE 30 MG
     Route: 048
     Dates: start: 20240115
  9. AZOSEMIDE [Concomitant]
     Active Substance: AZOSEMIDE
     Dosage: DAILY DOSE 30 MG
     Route: 048
     Dates: start: 20221128, end: 20230106

REACTIONS (6)
  - Cardiac failure [Recovered/Resolved]
  - Hyperkalaemia [Recovered/Resolved]
  - Oedema peripheral [Recovered/Resolved]
  - Epistaxis [Not Recovered/Not Resolved]
  - Anaemia [Recovering/Resolving]
  - Constipation [Recovered/Resolved]

NARRATIVE: CASE EVENT DATE: 20231206
